FAERS Safety Report 6815788-X (Version None)
Quarter: 2010Q3

REPORT INFORMATION
  Report Type: 
  Country: None (occurrence: None)
  Receive Date: 20100705
  Receipt Date: 20100624
  Transmission Date: 20110219
  Serious: Yes (Hospitalization)
  Sender: FDA-Public Use
  Company Number: JP-MERCK-1006USA04453

PATIENT
  Age: 27 Year
  Sex: Female

DRUGS (6)
  1. SINGULAIR [Suspect]
     Route: 048
  2. LORAZEPAM [Concomitant]
     Route: 048
  3. TALION [Concomitant]
     Route: 048
  4. ZETIA [Concomitant]
     Route: 048
  5. PULMICORT [Concomitant]
     Route: 055
  6. SEREVENT [Concomitant]
     Route: 055

REACTIONS (1)
  - HYPOKALAEMIA [None]
